FAERS Safety Report 25178107 (Version 1)
Quarter: 2025Q2

REPORT INFORMATION
  Report Type: Spontaneous
  Country: US (occurrence: None)
  Receive Date: 20250408
  Receipt Date: 20250408
  Transmission Date: 20250716
  Serious: No
  Sender: FDA-CTU
  Company Number: None

PATIENT
  Age: 89 Year
  Sex: Female

DRUGS (1)
  1. LENALIDOMIDE [Suspect]
     Active Substance: LENALIDOMIDE
     Indication: Plasma cell myeloma
     Dosage: 5MG QD ORAL?
     Route: 048
     Dates: start: 20240823

REACTIONS (3)
  - Neuropathy peripheral [None]
  - Decreased appetite [None]
  - Anaemia [None]

NARRATIVE: CASE EVENT DATE: 20250408
